FAERS Safety Report 13857959 (Version 1)
Quarter: 2017Q3

REPORT INFORMATION
  Report Type: Spontaneous
  Country: JP (occurrence: JP)
  Receive Date: 20170811
  Receipt Date: 20170811
  Transmission Date: 20171127
  Serious: Yes (Life-Threatening, Other)
  Sender: FDA-Public Use
  Company Number: PHHY2017JP116560

PATIENT

DRUGS (6)
  1. PEPLOMYCIN [Suspect]
     Active Substance: PEPLOMYCIN
     Indication: T-CELL LYMPHOMA
     Dosage: 7 MG/M2, ON DAY 22
     Route: 013
  2. CARBOPLATIN. [Suspect]
     Active Substance: CARBOPLATIN
     Indication: T-CELL LYMPHOMA
     Dosage: 100 MG/M2, ON DAYS 8 AND 22
     Route: 013
  3. PREDNISOLONE. [Suspect]
     Active Substance: PREDNISOLONE
     Indication: T-CELL LYMPHOMA
     Dosage: 75 MG, UNK
     Route: 048
  4. ETOPOSIDE. [Suspect]
     Active Substance: ETOPOSIDE
     Indication: T-CELL LYMPHOMA
     Dosage: 100 MG/M2, ON DAYS 1 AND 15
     Route: 013
  5. IFOSFAMIDE. [Suspect]
     Active Substance: IFOSFAMIDE
     Indication: T-CELL LYMPHOMA
     Dosage: 1500 MG/M2, ON DAYS 1 AND 15
     Route: 013
  6. METHOTREXATE. [Suspect]
     Active Substance: METHOTREXATE
     Indication: T-CELL LYMPHOMA
     Dosage: 260 MG/M2, ON DAY 8
     Route: 013

REACTIONS (2)
  - Mucosal inflammation [Unknown]
  - Osteonecrosis [Unknown]
